FAERS Safety Report 5833012-1 (Version None)
Quarter: 2008Q3

REPORT INFORMATION
  Report Type: 
  Country: None (occurrence: None)
  Receive Date: 20080805
  Receipt Date: 20080724
  Transmission Date: 20090109
  Serious: Yes (Hospitalization)
  Sender: FDA-Public Use
  Company Number: FR-RANBAXY-2008RR-16669

PATIENT

DRUGS (4)
  1. MINOCYCLINE HCL [Suspect]
     Indication: ACNE
     Dosage: UNK
     Dates: end: 20020508
  2. DOXYCYCLINE HCL [Concomitant]
     Indication: ACNE
  3. VITAMIN A ACID [Concomitant]
     Indication: ACNE
  4. ERYTHROMYCIN [Concomitant]
     Indication: ACNE

REACTIONS (2)
  - DRUG RASH WITH EOSINOPHILIA AND SYSTEMIC SYMPTOMS [None]
  - GENERAL PHYSICAL HEALTH DETERIORATION [None]
